FAERS Safety Report 17197341 (Version 6)
Quarter: 2020Q1

REPORT INFORMATION
  Report Type: Report from Study
  Country: US (occurrence: US)
  Receive Date: 20191224
  Receipt Date: 20200320
  Transmission Date: 20200409
  Serious: Yes (Hospitalization, Disabling)
  Sender: FDA-Public Use
  Company Number: US-ACTELION-A-US2019-199030

PATIENT
  Age: 60 Year
  Sex: Male
  Weight: 69.39 kg

DRUGS (9)
  1. UPTRAVI [Suspect]
     Active Substance: SELEXIPAG
     Indication: PULMONARY HYPERTENSION
     Dosage: 1200 MCG, BID
     Route: 048
     Dates: end: 202003
  2. LETAIRIS [Concomitant]
     Active Substance: AMBRISENTAN
     Dosage: 40 MG, QD
     Dates: start: 20190514
  3. UPTRAVI [Suspect]
     Active Substance: SELEXIPAG
     Dosage: 400 MCG, BID
     Route: 048
     Dates: start: 20191017
  4. TADALAFIL. [Concomitant]
     Active Substance: TADALAFIL
     Dosage: 40 MG, QD
     Route: 065
     Dates: start: 20190514
  5. TADALAFIL. [Concomitant]
     Active Substance: TADALAFIL
     Dosage: 10 MG, QD
  6. UPTRAVI [Suspect]
     Active Substance: SELEXIPAG
     Dosage: 1000 MCG, BID
     Route: 048
  7. AMLODIPINE [Concomitant]
     Active Substance: AMLODIPINE BESYLATE
  8. AMBRISENTAN [Concomitant]
     Active Substance: AMBRISENTAN
     Dosage: 5 MG, QD
  9. UPTRAVI [Suspect]
     Active Substance: SELEXIPAG
     Dosage: 600 MCG, BID
     Route: 048

REACTIONS (19)
  - Headache [Unknown]
  - Hepatic pain [Unknown]
  - Dizziness [Unknown]
  - Adverse event [Unknown]
  - Pneumonia [Unknown]
  - Disturbance in attention [Unknown]
  - End stage renal disease [Unknown]
  - Fluid retention [Recovered/Resolved]
  - Oedema [Unknown]
  - Secretion discharge [Not Recovered/Not Resolved]
  - Vomiting [Unknown]
  - Fatigue [Unknown]
  - Diarrhoea [Unknown]
  - Malaise [Unknown]
  - Pain in extremity [Unknown]
  - Abdominal pain [Recovered/Resolved]
  - Ascites [Not Recovered/Not Resolved]
  - Myalgia [Unknown]
  - Chest pain [Unknown]

NARRATIVE: CASE EVENT DATE: 20191206
